FAERS Safety Report 8965276 (Version 1)
Quarter: 2012Q4

REPORT INFORMATION
  Report Type: 
  Country: IN (occurrence: IN)
  Receive Date: 20121214
  Receipt Date: 20121214
  Transmission Date: 20130627
  Serious: Yes (Other)
  Sender: FDA-Public Use
  Company Number: IN-SANOFI-AVENTIS-2012SA090148

PATIENT
  Age: 2 Year
  Sex: Male

DRUGS (3)
  1. ALLEGRA [Suspect]
     Indication: RASH
     Route: 048
     Dates: start: 20121204, end: 20121204
  2. PHENIRAMINE MALEATE [Suspect]
     Indication: RASH
     Route: 058
     Dates: start: 20121204, end: 20121204
  3. CODEINE [Concomitant]
     Route: 048
     Dates: start: 20121204, end: 20121204

REACTIONS (2)
  - Convulsion [Recovered/Resolved]
  - Dyspnoea [Recovered/Resolved]
